FAERS Safety Report 10043514 (Version 1)
Quarter: 2014Q1

REPORT INFORMATION
  Report Type: Spontaneous
  Country: US (occurrence: None)
  Receive Date: 20140327
  Receipt Date: 20140327
  Transmission Date: 20141002
  Serious: Yes (Hospitalization)
  Sender: FDA-Public Use
  Company Number: None

PATIENT
  Age: 45 Year
  Sex: Male
  Weight: 154 kg

DRUGS (5)
  1. PASIREOTIDE [Suspect]
     Indication: THYROID CANCER METASTATIC
     Dosage: 60MG, Q4WKS IM
     Route: 030
     Dates: start: 20120328, end: 20140305
  2. EVEROLIMUS [Suspect]
     Indication: THYROID CANCER METASTATIC
     Route: 048
     Dates: start: 20120328, end: 201403
  3. DIPHENHYDRAMINE (BENADRYL) [Concomitant]
  4. MORPHINE [Concomitant]
  5. OXYCODONE [Concomitant]

REACTIONS (3)
  - Pleural effusion [None]
  - Thyroid cancer [None]
  - Malignant neoplasm progression [None]
